FAERS Safety Report 6839198-4 (Version None)
Quarter: 2010Q3

REPORT INFORMATION
  Report Type: 
  Country: None (occurrence: None)
  Receive Date: 20100709
  Receipt Date: 20100630
  Transmission Date: 20110219
  Serious: Yes (Death)
  Sender: FDA-Public Use
  Company Number: 2010EU003087

PATIENT
  Age: 74 Year
  Sex: Male

DRUGS (3)
  1. TACROLIMUS [Suspect]
     Indication: COLITIS ULCERATIVE
  2. CORTICOSTEROIDS [Suspect]
     Indication: COLITIS ULCERATIVE
  3. MERCAPTOPURINE [Concomitant]
     Indication: COLITIS ULCERATIVE
     Dates: start: 20080201

REACTIONS (12)
  - ABDOMINAL DISCOMFORT [None]
  - COLITIS ULCERATIVE [None]
  - CONDITION AGGRAVATED [None]
  - HEPATIC FAILURE [None]
  - HYPERGLYCAEMIA [None]
  - ILEUS PARALYTIC [None]
  - NAUSEA [None]
  - OFF LABEL USE [None]
  - PNEUMOCYSTIS JIROVECI PNEUMONIA [None]
  - REFUSAL OF TREATMENT BY PATIENT [None]
  - RESPIRATORY FAILURE [None]
  - SEPSIS [None]
